FAERS Safety Report 7226878-4 (Version None)
Quarter: 2011Q1

REPORT INFORMATION
  Report Type: 
  Country: None (occurrence: None)
  Receive Date: 20110114
  Receipt Date: 20110107
  Transmission Date: 20110831
  Serious: Yes (Hospitalization, Other)
  Sender: FDA-Public Use
  Company Number: FR-GENZYME-CAMP-1001255

PATIENT
  Sex: Male

DRUGS (8)
  1. OMIX [Concomitant]
     Indication: PRODUCT USED FOR UNKNOWN INDICATION
  2. ZELITREX [Concomitant]
     Indication: PRODUCT USED FOR UNKNOWN INDICATION
  3. CAMPATH [Suspect]
     Dosage: 30 MG, 3X/W
     Route: 042
     Dates: start: 20100601, end: 20100920
  4. BACTRIM [Concomitant]
     Indication: PRODUCT USED FOR UNKNOWN INDICATION
  5. LEXOMIL [Concomitant]
     Indication: PRODUCT USED FOR UNKNOWN INDICATION
  6. METFORMIN HCL [Concomitant]
     Indication: PRODUCT USED FOR UNKNOWN INDICATION
  7. CAMPATH [Suspect]
     Indication: PROLYMPHOCYTIC LEUKAEMIA
     Dosage: 30 MG, 3X/W
     Route: 042
     Dates: start: 20090201, end: 20090301
  8. NOVONORM [Concomitant]
     Indication: PRODUCT USED FOR UNKNOWN INDICATION

REACTIONS (2)
  - ANAEMIA HAEMOLYTIC AUTOIMMUNE [None]
  - LEUKAEMIA RECURRENT [None]
